FAERS Safety Report 20532147 (Version 3)
Quarter: 2022Q3

REPORT INFORMATION
  Report Type: Spontaneous
  Country: US (occurrence: None)
  Receive Date: 20220301
  Receipt Date: 20220827
  Transmission Date: 20221027
  Serious: Yes (Death, Other)
  Sender: FDA-Public Use
  Company Number: 2022A087700

PATIENT
  Age: 59 Year
  Sex: Female

DRUGS (27)
  1. PRILOSEC OTC [Suspect]
     Active Substance: OMEPRAZOLE MAGNESIUM
     Indication: Gastrooesophageal reflux disease
     Route: 048
     Dates: start: 2003, end: 2014
  2. PANTOPRAZOLE [Suspect]
     Active Substance: PANTOPRAZOLE
     Indication: Gastrooesophageal reflux disease
     Route: 065
     Dates: start: 2013, end: 2014
  3. HEPARIN [Concomitant]
     Active Substance: HEPARIN SODIUM
  4. PEPCID [Concomitant]
     Active Substance: FAMOTIDINE
  5. CLONIDINE [Concomitant]
     Active Substance: CLONIDINE
  6. NORVASC [Concomitant]
     Active Substance: AMLODIPINE BESYLATE
  7. PHOSLO [Concomitant]
     Active Substance: CALCIUM ACETATE
  8. KEVELOL [Concomitant]
  9. LISINOPRIL [Concomitant]
     Active Substance: LISINOPRIL
  10. CARDIZEM [Concomitant]
     Active Substance: DILTIAZEM HYDROCHLORIDE
  11. TUMS [Concomitant]
     Active Substance: CALCIUM CARBONATE
  12. COREG [Concomitant]
     Active Substance: CARVEDILOL
  13. DIPHENHYDRAMINE [Concomitant]
     Active Substance: DIPHENHYDRAMINE
  14. ACETAMENOPHEN [Concomitant]
  15. METOPROLOL [Concomitant]
     Active Substance: METOPROLOL
  16. ENGERIX-B [Concomitant]
     Active Substance: HEPATITIS B VIRUS SUBTYPE ADW2 HBSAG SURFACE PROTEIN ANTIGEN
  17. LIDOCAINE [Concomitant]
     Active Substance: LIDOCAINE
  18. DIGOXIN [Concomitant]
     Active Substance: DIGOXIN
  19. NITROGLYCERIN [Concomitant]
     Active Substance: NITROGLYCERIN
  20. CLINDAMYCIN [Concomitant]
     Active Substance: CLINDAMYCIN
  21. RIFAMPIN [Concomitant]
     Active Substance: RIFAMPIN
  22. HYDRALAZINE [Concomitant]
     Active Substance: HYDRALAZINE HYDROCHLORIDE
     Indication: Hypertension
     Dates: start: 2011, end: 2015
  23. SIMVASTATIN [Concomitant]
     Active Substance: SIMVASTATIN
     Indication: Hyperlipidaemia
     Dates: start: 2012, end: 2014
  24. LEVOFLOXACIN [Concomitant]
     Active Substance: LEVOFLOXACIN
     Indication: Infection
     Dates: start: 2012, end: 2014
  25. AZITHROMYCIN [Concomitant]
     Active Substance: AZITHROMYCIN
     Indication: Infection
     Dates: start: 2013
  26. CIPROFLOXACIN [Concomitant]
     Active Substance: CIPROFLOXACIN
     Indication: Infection
     Dates: start: 2013
  27. DOXYCYCLINE [Concomitant]
     Active Substance: DOXYCYCLINE
     Indication: Infection
     Dates: start: 2014

REACTIONS (5)
  - Acute respiratory failure [Fatal]
  - Status epilepticus [Fatal]
  - End stage renal disease [Fatal]
  - Chronic kidney disease [Unknown]
  - Nephrogenic anaemia [Unknown]

NARRATIVE: CASE EVENT DATE: 20100101
